FAERS Safety Report 12325057 (Version 3)
Quarter: 2016Q2

REPORT INFORMATION
  Report Type: Spontaneous
  Country: JP (occurrence: JP)
  Receive Date: 20160502
  Receipt Date: 20160629
  Transmission Date: 20160815
  Serious: Yes (Hospitalization)
  Sender: FDA-Public Use
  Company Number: JP-B.I. PHARMACEUTICALS,INC./RIDGEFIELD-2016-BI-27001NB

PATIENT
  Age: 83 Year
  Sex: Male
  Weight: 42.5 kg

DRUGS (11)
  1. TRAZENTA [Suspect]
     Active Substance: LINAGLIPTIN
     Indication: PRODUCT USED FOR UNKNOWN INDICATION
     Dosage: 5 MG
     Route: 048
     Dates: start: 20150306, end: 20160107
  2. TRAZENTA [Suspect]
     Active Substance: LINAGLIPTIN
     Dosage: 5 MG
     Route: 048
     Dates: start: 20160415, end: 20160421
  3. FAMOTIDINE OD [Concomitant]
     Active Substance: FAMOTIDINE
     Indication: PROPHYLAXIS AGAINST GASTROINTESTINAL ULCER
     Dosage: 40 MG
     Route: 048
     Dates: start: 20150217, end: 20160422
  4. NOVORAPID [Concomitant]
     Active Substance: INSULIN ASPART
     Indication: TYPE 2 DIABETES MELLITUS
     Dosage: 18 U
     Route: 058
     Dates: start: 20160412
  5. LANTUS [Concomitant]
     Active Substance: INSULIN GLARGINE
     Indication: TYPE 2 DIABETES MELLITUS
     Dosage: 6 U
     Route: 058
     Dates: start: 20160416
  6. ALLELOCK [Concomitant]
     Active Substance: OLOPATADINE HYDROCHLORIDE
     Indication: PEMPHIGOID
     Dosage: 10 MG
     Route: 048
     Dates: start: 20150216, end: 20160422
  7. AMOBANTES [Concomitant]
     Indication: INSOMNIA
     Dosage: 3.75 MG
     Route: 048
     Dates: start: 20150216, end: 20160422
  8. ALENDRONATE [Concomitant]
     Active Substance: ALENDRONATE SODIUM
     Indication: OSTEOPOROSIS PROPHYLAXIS
     Dosage: 5 MG
     Route: 048
     Dates: start: 20150319
  9. PREDONINE [Concomitant]
     Active Substance: PREDNISOLONE\PREDNISOLONE ACETATE\PREDNISOLONE SODIUM SUCCINATE
     Indication: PEMPHIGOID
     Dosage: 7.5 MG
     Route: 048
     Dates: start: 20150209
  10. PERYCIT [Concomitant]
     Indication: PEMPHIGOID
     Dosage: 750 MG
     Route: 048
     Dates: start: 20150205, end: 20160422
  11. CINAL [Concomitant]
     Active Substance: ASCORBIC ACID\CALCIUM PANTOTHENATE
     Indication: PEMPHIGOID
     Dosage: 400 MG
     Route: 048
     Dates: start: 20150402, end: 20160422

REACTIONS (1)
  - Hepatic function abnormal [Recovered/Resolved]

NARRATIVE: CASE EVENT DATE: 20160422
